FAERS Safety Report 20439785 (Version 2)
Quarter: 2022Q1

REPORT INFORMATION
  Report Type: Spontaneous
  Country: JP (occurrence: JP)
  Receive Date: 20220207
  Receipt Date: 20220329
  Transmission Date: 20220423
  Serious: Yes (Death, Hospitalization, Other)
  Sender: FDA-Public Use
  Company Number: JP-ELI_LILLY_AND_COMPANY-JP202202001147

PATIENT
  Age: 78 Year
  Sex: Male
  Weight: 40 kg

DRUGS (2)
  1. CYRAMZA [Suspect]
     Active Substance: RAMUCIRUMAB
     Indication: Gastric cancer stage IV
     Dosage: 8 MG/KG, OTHER
     Route: 041
     Dates: start: 20200204, end: 20200929
  2. PACLITAXEL [Suspect]
     Active Substance: PACLITAXEL
     Indication: Gastric cancer stage IV
     Dosage: 80 MG/M2, OTHER
     Route: 065
     Dates: start: 20200204, end: 20200929

REACTIONS (5)
  - Respiratory failure [Fatal]
  - Hypoglycaemic coma [Fatal]
  - Pleural effusion [Fatal]
  - Pulmonary oedema [Fatal]
  - Neutropenia [Recovered/Resolved]

NARRATIVE: CASE EVENT DATE: 20200218
